FAERS Safety Report 25663747 (Version 2)
Quarter: 2025Q3

REPORT INFORMATION
  Report Type: Report from Study
  Country: IL (occurrence: IL)
  Receive Date: 20250811
  Receipt Date: 20250926
  Transmission Date: 20251020
  Serious: Yes (Other)
  Sender: TEVA
  Company Number: IL-TEVA-VS-3360438

PATIENT
  Age: 71 Year
  Sex: Female

DRUGS (1)
  1. AJOVY [Suspect]
     Active Substance: FREMANEZUMAB-VFRM
     Indication: Migraine
     Route: 065
     Dates: start: 20231122

REACTIONS (2)
  - Cardiac failure [Unknown]
  - Product use issue [Unknown]

NARRATIVE: CASE EVENT DATE: 20231122
